FAERS Safety Report 5385002-3 (Version None)
Quarter: 2007Q3

REPORT INFORMATION
  Report Type: 
  Country: None (occurrence: None)
  Receive Date: 20070712
  Receipt Date: 20070703
  Transmission Date: 20080115
  Serious: Yes (Disabling, Other)
  Sender: FDA-Public Use
  Company Number: PHEH2007US08020

PATIENT
  Age: 59 Year
  Sex: Female
  Weight: 88.435 kg

DRUGS (11)
  1. ZELNORM [Suspect]
     Indication: IRRITABLE BOWEL SYNDROME
     Dosage: 6 MG, BID
     Route: 048
     Dates: start: 20040324, end: 20070416
  2. BONIVA [Concomitant]
     Indication: OSTEOPOROSIS
     Dosage: 150 MG, QMO
     Route: 048
     Dates: start: 20060501
  3. LISINOPRIL [Concomitant]
     Indication: HYPERTENSION
     Dosage: 20 MG, QD
     Route: 048
     Dates: start: 20060501
  4. REGLAN [Concomitant]
     Indication: GASTROOESOPHAGEAL REFLUX DISEASE
     Dosage: 10 MG, QHS
     Route: 048
     Dates: start: 20040101
  5. LEVOXYL [Concomitant]
     Indication: HYPOTHYROIDISM
     Dosage: 150 UG, QD
     Route: 048
     Dates: start: 20010101
  6. SINGULAIR [Concomitant]
     Indication: RHINITIS ALLERGIC
     Dosage: 10 MG, QD
     Route: 048
     Dates: start: 20030501
  7. PROTONIX [Concomitant]
     Indication: GASTROOESOPHAGEAL REFLUX DISEASE
     Dosage: 40 MG, BID
     Route: 048
     Dates: start: 20030701
  8. LIPITOR [Concomitant]
     Indication: BLOOD CHOLESTEROL INCREASED
     Dosage: 20 MG, QD
     Route: 048
     Dates: start: 20050701
  9. ALLEGRA [Concomitant]
     Indication: RHINITIS ALLERGIC
     Dosage: 180 MG, QD
     Route: 048
     Dates: start: 20030401
  10. LEVSIN [Concomitant]
     Indication: IRRITABLE BOWEL SYNDROME
     Dosage: 0.125 MG/H, QD PRN
     Route: 048
     Dates: start: 20040101
  11. SKELAXIN [Concomitant]
     Indication: MUSCLE SPASMS
     Dosage: 800 MG, QD PRN
     Route: 048
     Dates: start: 20040401

REACTIONS (13)
  - BLINDNESS [None]
  - CAROTID ARTERY DISEASE [None]
  - CATARACT [None]
  - DIABETIC EYE DISEASE [None]
  - DIABETIC NEUROPATHY [None]
  - DYSLIPIDAEMIA [None]
  - FOREIGN BODY SENSATION IN EYES [None]
  - HYPERTENSION [None]
  - OPTIC ISCHAEMIC NEUROPATHY [None]
  - RED BLOOD CELL SEDIMENTATION RATE INCREASED [None]
  - TYPE 2 DIABETES MELLITUS [None]
  - VISION BLURRED [None]
  - VISUAL ACUITY REDUCED [None]
